FAERS Safety Report 24713382 (Version 2)
Quarter: 2024Q4

REPORT INFORMATION
  Report Type: Spontaneous
  Country: US (occurrence: US)
  Receive Date: 20241209
  Receipt Date: 20241231
  Transmission Date: 20250115
  Serious: Yes (Hospitalization)
  Sender: CSL BEHRING
  Company Number: US-BEH-2024186777

PATIENT
  Age: 79 Year
  Sex: Female

DRUGS (7)
  1. HUMATE-P [Suspect]
     Active Substance: HUMAN COAGULATION FACTOR VIII/VON WILLEBRAND FACTOR COMPLEX
     Indication: Von Willebrand^s disease
     Dosage: 3500 RCOF UNITS (STRENGTH: 2400)
     Route: 042
     Dates: start: 20240222
  2. HUMATE-P [Suspect]
     Active Substance: HUMAN COAGULATION FACTOR VIII/VON WILLEBRAND FACTOR COMPLEX
     Indication: Gastrointestinal haemorrhage
     Dosage: 3500 RCOF UNITS (STRENGTH: 1200)
     Route: 042
     Dates: start: 20240222
  3. HUMATE-P [Suspect]
     Active Substance: HUMAN COAGULATION FACTOR VIII/VON WILLEBRAND FACTOR COMPLEX
     Dosage: 3500 RCOF UNITS (STRENGTH: 2400), DAILY FOR 10 DAYS
     Route: 042
     Dates: start: 202402
  4. HUMATE-P [Suspect]
     Active Substance: HUMAN COAGULATION FACTOR VIII/VON WILLEBRAND FACTOR COMPLEX
     Dosage: 3500 RCOF UNITS (STRENGTH: 1200), DAILY FOR 10 DAYS
     Route: 042
     Dates: start: 202402
  5. HUMATE-P [Suspect]
     Active Substance: HUMAN COAGULATION FACTOR VIII/VON WILLEBRAND FACTOR COMPLEX
     Dosage: 3500 RCOF UNITS (STRENGTH: 2400), BIW
     Route: 042
     Dates: start: 202402
  6. HUMATE-P [Suspect]
     Active Substance: HUMAN COAGULATION FACTOR VIII/VON WILLEBRAND FACTOR COMPLEX
     Dosage: 3500 RCOF UNITS (STRENGTH: 1200), BIW
     Route: 042
     Dates: start: 202402
  7. SODIUM CHLORIDE [Concomitant]
     Active Substance: SODIUM CHLORIDE
     Dosage: UNK, (POS STERILE F (10ML))

REACTIONS (1)
  - Internal haemorrhage [Not Recovered/Not Resolved]

NARRATIVE: CASE EVENT DATE: 20241122
